FAERS Safety Report 11608878 (Version 1)
Quarter: 2015Q4

REPORT INFORMATION
  Report Type: Spontaneous
  Country: US (occurrence: US)
  Receive Date: 20151007
  Receipt Date: 20151007
  Transmission Date: 20160304
  Serious: No
  Sender: FDA-Public Use
  Company Number: US-BAYER-2015-438713

PATIENT
  Age: 95 Year
  Sex: Male
  Weight: 81.63 kg

DRUGS (2)
  1. CLARITIN REDITABS [Suspect]
     Active Substance: LORATADINE
     Dosage: 2 DF, BID
     Dates: start: 2012
  2. CLARITIN REDITABS [Suspect]
     Active Substance: LORATADINE
     Dosage: 3 DF, UNK
     Dates: start: 2012

REACTIONS (1)
  - Product use issue [Unknown]
